FAERS Safety Report 9247267 (Version 3)
Quarter: 2013Q2

REPORT INFORMATION
  Report Type: Spontaneous
  Country: US (occurrence: US)
  Receive Date: 20130423
  Receipt Date: 20130603
  Transmission Date: 20140414
  Serious: Yes (Hospitalization)
  Sender: FDA-Public Use
  Company Number: US-AMGEN-USASP2013027533

PATIENT
  Age: 2 Year
  Sex: Male
  Weight: 12.4 kg

DRUGS (3)
  1. ENBREL [Suspect]
     Indication: JUVENILE IDIOPATHIC ARTHRITIS
     Dosage: 0.4 ML, 2 TIMES/WK
     Route: 058
     Dates: start: 20130313
  2. IBUPROFEN [Concomitant]
     Indication: JUVENILE IDIOPATHIC ARTHRITIS
     Dosage: 6 ML, TID
     Route: 048
  3. METHOTREXATE [Concomitant]
     Indication: JUVENILE IDIOPATHIC ARTHRITIS
     Dosage: 0.4 ML, QWK
     Route: 058

REACTIONS (1)
  - Abdominal pain [Recovered/Resolved]
